FAERS Safety Report 19398902 (Version 1)
Quarter: 2021Q2

REPORT INFORMATION
  Report Type: Spontaneous
  Country: US (occurrence: US)
  Receive Date: 20210610
  Receipt Date: 20210610
  Transmission Date: 20210717
  Serious: Yes (Hospitalization)
  Sender: FDA-Public Use
  Company Number: None

PATIENT
  Age: 43 Year
  Sex: Female

DRUGS (1)
  1. 1000 MG THC DELTA 8 BROWNIE [Suspect]
     Active Substance: .DELTA.8-TETRAHYDROCANNABINOL\HERBALS

REACTIONS (4)
  - Seizure [None]
  - Intentional overdose [None]
  - Loss of consciousness [None]
  - Speech disorder [None]

NARRATIVE: CASE EVENT DATE: 20210313
